FAERS Safety Report 9955548 (Version 2)
Quarter: 2014Q1

REPORT INFORMATION
  Report Type: Spontaneous
  Country: US (occurrence: US)
  Receive Date: 20140304
  Receipt Date: 20140304
  Transmission Date: 20141002
  Serious: No
  Sender: FDA-Public Use
  Company Number: US-ABBVIE-13P-163-1073632-00

PATIENT
  Age: 38 Year
  Sex: Female
  Weight: 95.34 kg

DRUGS (4)
  1. HUMIRA [Suspect]
     Indication: CROHN^S DISEASE
     Dates: start: 20130317, end: 20130317
  2. HUMIRA [Suspect]
     Dates: start: 20130331, end: 20130331
  3. NADOLOL [Concomitant]
     Indication: MIGRAINE
  4. ZOLOFT [Concomitant]
     Indication: ANXIETY

REACTIONS (4)
  - Incorrect dose administered [Unknown]
  - Injection site pain [Not Recovered/Not Resolved]
  - Injection site pain [Unknown]
  - Device malfunction [Unknown]
